FAERS Safety Report 16595616 (Version 1)
Quarter: 2019Q3

REPORT INFORMATION
  Report Type: Spontaneous
  Country: ES (occurrence: ES)
  Receive Date: 20190719
  Receipt Date: 20190719
  Transmission Date: 20191004
  Serious: Yes (Life-Threatening, Hospitalization)
  Sender: FDA-Public Use
  Company Number: ES-B.I. PHARMACEUTICALS,INC./RIDGEFIELD-2019-12-002251

PATIENT
  Age: 77 Year
  Sex: Female
  Weight: 110 kg

DRUGS (7)
  1. TRIAMCINOLONA ACETONIDO [Concomitant]
     Indication: RASH ERYTHEMATOUS
     Route: 061
     Dates: start: 20190606
  2. BISOPROLOL [Suspect]
     Active Substance: BISOPROLOL
     Indication: HYPERTENSION
     Route: 048
     Dates: start: 20190606, end: 20190608
  3. OMEPRAZOL [Concomitant]
     Active Substance: OMEPRAZOLE
     Indication: GASTRITIS PROPHYLAXIS
     Route: 048
     Dates: start: 20190606
  4. NOLOTIL (METAMIZOLE MAGNESIUM) [Suspect]
     Active Substance: METAMIZOLE MAGNESIUM
     Indication: PAIN
     Dosage: 0,4 G/ML
     Route: 042
     Dates: start: 20190523, end: 20190608
  5. ATROVENT [Suspect]
     Active Substance: IPRATROPIUM BROMIDE
     Indication: BRONCHIAL HYPERREACTIVITY
     Route: 055
     Dates: start: 20190606
  6. MESNA. [Suspect]
     Active Substance: MESNA
     Indication: PRODUCT USED FOR UNKNOWN INDICATION
     Route: 055
     Dates: start: 20190606, end: 20190608
  7. ZINC OXIDE. [Concomitant]
     Active Substance: ZINC OXIDE
     Indication: RASH ERYTHEMATOUS
     Route: 061
     Dates: start: 20190606

REACTIONS (1)
  - Anaphylactic shock [Recovered/Resolved]

NARRATIVE: CASE EVENT DATE: 20190608
